FAERS Safety Report 18655818 (Version 6)
Quarter: 2022Q2

REPORT INFORMATION
  Report Type: Spontaneous
  Country: US (occurrence: US)
  Receive Date: 20201223
  Receipt Date: 20220621
  Transmission Date: 20220721
  Serious: Yes (Other)
  Sender: FDA-Public Use
  Company Number: US-PFIZER INC-2020506042

PATIENT
  Age: 89 Year
  Sex: Female
  Weight: 75.751 kg

DRUGS (3)
  1. PROCARDIA XL [Suspect]
     Active Substance: NIFEDIPINE
     Indication: Essential hypertension
     Dosage: 30 MG
  2. PROCARDIA XL [Suspect]
     Active Substance: NIFEDIPINE
     Dosage: 90 MG, 1X/DAY
     Route: 048
     Dates: start: 20220427
  3. PROCARDIA XL [Suspect]
     Active Substance: NIFEDIPINE
     Dosage: 90 MG, 1X/DAY
     Route: 048
     Dates: start: 20220502

REACTIONS (6)
  - Neuropathy peripheral [Unknown]
  - Drug ineffective [Unknown]
  - Blood pressure inadequately controlled [Unknown]
  - Hypoacusis [Unknown]
  - Illness [Unknown]
  - Pain [Unknown]
